FAERS Safety Report 5694133-X (Version None)
Quarter: 2008Q2

REPORT INFORMATION
  Report Type: 
  Country: None (occurrence: None)
  Receive Date: 20080402
  Receipt Date: 20080319
  Transmission Date: 20081010
  Serious: Yes (Hospitalization)
  Sender: FDA-Public Use
  Company Number: 025550

PATIENT
  Sex: Male

DRUGS (6)
  1. ANTABUSE [Suspect]
     Indication: ALCOHOLISM
     Dosage: 250 MG, QD, ORAL; 500 MG, QD, ORAL
     Route: 048
     Dates: start: 20071201, end: 20080303
  2. ANTABUSE [Suspect]
     Indication: ALCOHOLISM
     Dosage: 250 MG, QD, ORAL; 500 MG, QD, ORAL
     Route: 048
     Dates: start: 20080304
  3. MAGNESIUM (MAGNESIUM) [Concomitant]
  4. POTASSIUM (POTASSIUM) [Concomitant]
  5. PRILOSEC [Concomitant]
  6. SLOW-MAG (MAGNESIUM CHLORIDE ANHYDROUS) [Concomitant]

REACTIONS (1)
  - BREATH ALCOHOL TEST POSITIVE [None]
